FAERS Safety Report 7892199-X (Version None)
Quarter: 2011Q4

REPORT INFORMATION
  Report Type: 
  Country: None (occurrence: None)
  Receive Date: 20111104
  Receipt Date: 20111025
  Transmission Date: 20120403
  Serious: Yes (Hospitalization, Other)
  Sender: FDA-Public Use
  Company Number: BR-ASTRAZENECA-2011SE64893

PATIENT
  Age: 54 Year
  Sex: Female

DRUGS (8)
  1. DIOVAN TRIPLO [Concomitant]
     Route: 048
  2. ROSUVASTATIN [Suspect]
     Route: 048
  3. ATENOLOL [Suspect]
     Route: 048
  4. OLMESARTANA [Suspect]
     Indication: HYPERTENSION
     Route: 048
  5. ATENOLOL/CLORTALIDONA [Suspect]
     Indication: HYPERTENSION
     Dosage: 50/12.5 MG
     Route: 048
  6. ASPIRIN [Concomitant]
     Route: 048
  7. CLOPIDOGREL [Concomitant]
     Route: 048
  8. AMLODIPINE [Suspect]
     Indication: HYPERTENSION
     Route: 048

REACTIONS (7)
  - ELECTROCARDIOGRAM ST SEGMENT ELEVATION [None]
  - BLOOD PRESSURE INADEQUATELY CONTROLLED [None]
  - HYPERTENSION [None]
  - METABOLIC SYNDROME [None]
  - CHEST PAIN [None]
  - CORONARY ARTERY DISEASE [None]
  - DYSLIPIDAEMIA [None]
